FAERS Safety Report 6530705-8 (Version None)
Quarter: 2010Q1

REPORT INFORMATION
  Report Type: 
  Country: None (occurrence: None)
  Receive Date: 20100108
  Receipt Date: 20081204
  Transmission Date: 20100710
  Serious: No
  Sender: FDA-Public Use
  Company Number: A0759292A

PATIENT
  Age: 48 Year
  Sex: Male

DRUGS (3)
  1. LOVAZA [Suspect]
     Dosage: 4CAP PER DAY
     Route: 048
     Dates: start: 20080901
  2. BYETTA [Concomitant]
  3. LIPITOR [Concomitant]

REACTIONS (2)
  - ERUCTATION [None]
  - INCORRECT STORAGE OF DRUG [None]
